FAERS Safety Report 7956787-4 (Version None)
Quarter: 2011Q4

REPORT INFORMATION
  Report Type: 
  Country: None (occurrence: None)
  Receive Date: 20111205
  Receipt Date: 20111010
  Transmission Date: 20120403
  Serious: No
  Sender: FDA-Public Use
  Company Number: US-BAYER-2011-098561

PATIENT

DRUGS (1)
  1. ALEVE (CAPLET) [Suspect]

REACTIONS (5)
  - OEDEMA [None]
  - HYPERSENSITIVITY [None]
  - ERYTHEMA [None]
  - PRESYNCOPE [None]
  - TREMOR [None]
